FAERS Safety Report 17997798 (Version 2)
Quarter: 2020Q3

REPORT INFORMATION
  Report Type: Spontaneous
  Country: US (occurrence: US)
  Receive Date: 20200709
  Receipt Date: 20200813
  Transmission Date: 20201103
  Serious: No
  Sender: FDA-Public Use
  Company Number: US-TEVA-2020-US-1792593

PATIENT
  Sex: Female

DRUGS (1)
  1. AUSTEDO [Suspect]
     Active Substance: DEUTETRABENAZINE
     Indication: DYSKINESIA
     Dosage: 24 MILLIGRAM DAILY;
     Route: 065
     Dates: start: 202005, end: 20200617

REACTIONS (5)
  - Pain in extremity [Unknown]
  - Product use in unapproved indication [Unknown]
  - Gait inability [Unknown]
  - Refusal of treatment by patient [Unknown]
  - Patient dissatisfaction with treatment [Unknown]
